FAERS Safety Report 17771417 (Version 4)
Quarter: 2020Q2

REPORT INFORMATION
  Report Type: Other
  Country: CZ (occurrence: CZ)
  Receive Date: 20200512
  Receipt Date: 20200605
  Transmission Date: 20200714
  Serious: Yes (Life-Threatening, Hospitalization, Other)
  Sender: FDA-Public Use
  Company Number: CZ-ABBVIE-20K-217-3240423-00

PATIENT
  Sex: Male

DRUGS (15)
  1. VENETOCLAX. [Suspect]
     Active Substance: VENETOCLAX
     Indication: CHRONIC LYMPHOCYTIC LEUKAEMIA
     Route: 048
     Dates: start: 20160624
  2. VENETOCLAX. [Suspect]
     Active Substance: VENETOCLAX
     Dosage: 7TH CYCLE COMBINATION THERAPY WITH VENETOCLAX, RITUXIMAB AND CYCLOPHOSPHAMIDE
     Route: 048
     Dates: start: 2019, end: 2019
  3. RITUXIMAB. [Concomitant]
     Active Substance: RITUXIMAB
     Dates: start: 201301, end: 201307
  4. IMBRUVICA [Suspect]
     Active Substance: IBRUTINIB
     Indication: CHRONIC LYMPHOCYTIC LEUKAEMIA
     Route: 048
     Dates: start: 201510
  5. RITUXIMAB. [Concomitant]
     Active Substance: RITUXIMAB
     Indication: CHRONIC LYMPHOCYTIC LEUKAEMIA
     Dates: start: 201010, end: 201107
  6. RITUXIMAB. [Concomitant]
     Active Substance: RITUXIMAB
     Dates: start: 201504, end: 201508
  7. RITUXIMAB. [Concomitant]
     Active Substance: RITUXIMAB
     Dosage: 375 MG/M2 (6TH CYCLE, COMBINATION WITH VENETOCLAX AND CYCLOPHOSPHAMIDE)
     Dates: end: 20190423
  8. IMBRUVICA [Suspect]
     Active Substance: IBRUTINIB
     Dosage: 140 MG, DAILY?DOSE DECREASED/REDUCED
     Route: 048
  9. VENETOCLAX. [Suspect]
     Active Substance: VENETOCLAX
     Indication: DISEASE PROGRESSION
     Dosage: 400 MG DAILY, INITIAL COMBINATION THERAPY WITH VENETOCLAX, RITUXIMAB AND CYCLOPHOSPHAMIDE
     Route: 048
     Dates: start: 20181109
  10. CYCLOPHOSPHAMIDE. [Concomitant]
     Active Substance: CYCLOPHOSPHAMIDE
     Indication: CHRONIC LYMPHOCYTIC LEUKAEMIA
     Dosage: 700 MG/M2 EVERY 28 DAYS 6 CYCLE COMB THERAPY WITH VENETOCLAX,RITUXIMAB,CYCLOPHOSPHAMI
     Dates: start: 20190423
  11. RITUXIMAB. [Concomitant]
     Active Substance: RITUXIMAB
     Dosage: 375 MG/M2 (FCR THERAPY)
  12. VENETOCLAX. [Suspect]
     Active Substance: VENETOCLAX
     Dosage: 400 MG DAILY, 6 CYCLE COMBINATION THERAPY WITH VENETOCLAX, RITUXIMAB AND CYCLOPHOSPHAMIDE
     Route: 048
     Dates: start: 20190423, end: 2019
  13. VENETOCLAX. [Suspect]
     Active Substance: VENETOCLAX
     Dosage: LAST CYCLE COMBINATION THERAPY WITH VENETOCLAX, RITUXIMAB AND CYCLOPHOSPHAMIDE
     Route: 048
     Dates: start: 2019
  14. CYCLOPHOSPHAMIDE. [Concomitant]
     Active Substance: CYCLOPHOSPHAMIDE
     Dosage: LAST CYCLE COMBINATION THERAPY WITH VENETOCLAX, RITUXIMAB AND CYCLOPHOSPHAM
  15. CYCLOPHOSPHAMIDE. [Concomitant]
     Active Substance: CYCLOPHOSPHAMIDE
     Indication: DISEASE PROGRESSION
     Dosage: 700 MG/M2 EVERY 28 DAYS, COMBINATION THERAPY WITH VENETOCLAX, RITUXIMAB CYCLOPHOSPHAMI
     Dates: start: 20181109

REACTIONS (10)
  - Cellulitis [Unknown]
  - Drug resistance [Unknown]
  - Disease progression [Not Recovered/Not Resolved]
  - Off label use [Unknown]
  - Therapeutic product effect incomplete [Unknown]
  - Neutropenia [Unknown]
  - Drug intolerance [Unknown]
  - Infection [Unknown]
  - Incorrect dose administered [Unknown]
  - Nervous system disorder [Unknown]

NARRATIVE: CASE EVENT DATE: 201603
